FAERS Safety Report 18592951 (Version 3)
Quarter: 2022Q3

REPORT INFORMATION
  Report Type: Spontaneous
  Country: JP (occurrence: JP)
  Receive Date: 20201208
  Receipt Date: 20220808
  Transmission Date: 20221027
  Serious: Yes (Death, Hospitalization)
  Sender: FDA-Public Use
  Company Number: JP-ELI_LILLY_AND_COMPANY-JP202012002494

PATIENT
  Age: 81 Year
  Sex: Female
  Weight: 55.2 kg

DRUGS (32)
  1. ADCIRCA [Suspect]
     Active Substance: TADALAFIL
     Indication: Pulmonary arterial hypertension
     Dosage: 20 MG, DAILY
     Route: 065
  2. UPTRAVI [Suspect]
     Active Substance: SELEXIPAG
     Indication: Pulmonary arterial hypertension
     Dosage: 0.2 MG, DAILY
     Route: 048
     Dates: start: 20170429, end: 20170501
  3. UPTRAVI [Suspect]
     Active Substance: SELEXIPAG
     Dosage: 0.2 MG, BID
     Route: 048
     Dates: start: 20170502, end: 20170508
  4. UPTRAVI [Suspect]
     Active Substance: SELEXIPAG
     Dosage: 0.6 MG, BID
     Route: 048
     Dates: start: 20170509, end: 20170515
  5. UPTRAVI [Suspect]
     Active Substance: SELEXIPAG
     Dosage: 0.4 MG, BID
     Route: 048
     Dates: start: 20170516, end: 20170524
  6. UPTRAVI [Suspect]
     Active Substance: SELEXIPAG
     Dosage: 1 MG, BID
     Dates: start: 20170525, end: 20170605
  7. UPTRAVI [Suspect]
     Active Substance: SELEXIPAG
     Dosage: 0.6 MG, BID
     Route: 048
     Dates: start: 20170606, end: 20170911
  8. UPTRAVI [Suspect]
     Active Substance: SELEXIPAG
     Dosage: 1 MG, BID
     Route: 048
     Dates: start: 20170912, end: 20180501
  9. FUROSEMIDE [Concomitant]
     Active Substance: FUROSEMIDE
     Indication: Product used for unknown indication
     Dosage: 20 MG, UNKNOWN
     Route: 065
  10. POTASSIUM GLUCONATE [Concomitant]
     Active Substance: POTASSIUM GLUCONATE
     Indication: Hypokalaemia
     Dosage: 6 G, DAILY
     Route: 065
     Dates: start: 20170430
  11. ENALAPRIL [Concomitant]
     Active Substance: ENALAPRIL
     Indication: Hypertension
     Dosage: 5 MG, UNKNOWN
     Route: 065
  12. SPIRONOLACTONE [Concomitant]
     Active Substance: SPIRONOLACTONE
     Indication: Hypertension
     Dosage: 25 MG, UNKNOWN
     Route: 065
  13. DONEPEZIL [Concomitant]
     Active Substance: DONEPEZIL
     Indication: Dementia
     Dosage: 3 MG, UNKNOWN
  14. NIFEDIPINE [Concomitant]
     Active Substance: NIFEDIPINE
     Indication: Hypertension
     Dosage: 40 MG, UNKNOWN
     Route: 065
  15. NEXIUM [Concomitant]
     Active Substance: ESOMEPRAZOLE MAGNESIUM
     Indication: Gastrooesophageal reflux disease
     Dosage: 20 MG, UNKNOWN
     Route: 065
  16. DIETARY SUPPLEMENT\PROBIOTICS [Concomitant]
     Active Substance: DIETARY SUPPLEMENT\PROBIOTICS
     Indication: Diarrhoea
     Dosage: 3 G, UNKNOWN
     Route: 065
  17. PRANLUKAST [Concomitant]
     Active Substance: PRANLUKAST
     Indication: Asthma
     Dosage: 112.5 MG, UNKNOWN
     Route: 065
  18. FLUTICASONE PROPIONATE\SALMETEROL XINAFOATE [Concomitant]
     Active Substance: FLUTICASONE PROPIONATE\SALMETEROL XINAFOATE
     Indication: Asthma
     Dosage: 2 DOSAGE FORM, UNKNOWN
     Route: 065
  19. BONALON [Concomitant]
     Active Substance: ALENDRONATE SODIUM
     Indication: Osteoporosis
     Dosage: UNK, UNKNOWN
     Route: 065
     Dates: end: 20170919
  20. ALFACALCIDOL [Concomitant]
     Active Substance: ALFACALCIDOL
     Indication: Osteoporosis
     Dosage: 0.25 UG, UNKNOWN
     Route: 065
     Dates: start: 20170610
  21. EDOXABAN TOSYLATE [Concomitant]
     Active Substance: EDOXABAN TOSYLATE
     Indication: Venous thrombosis limb
     Dosage: 30 MG, UNKNOWN
     Route: 065
     Dates: start: 20170530, end: 20170919
  22. SAMSCA [Concomitant]
     Active Substance: TOLVAPTAN
     Indication: Product used for unknown indication
     Dosage: 3.75 MG, UNKNOWN
     Route: 065
     Dates: start: 20170602, end: 20180501
  23. HEPAACT [Concomitant]
     Indication: Hepatitis C
     Dosage: 13.5 G, UNKNOWN
     Route: 065
     Dates: start: 20170714, end: 20180501
  24. UNSPECIFIED INGREDIENT [Concomitant]
     Active Substance: UNSPECIFIED INGREDIENT
     Indication: Hepatitis C
     Dosage: 10 G, UNKNOWN
     Route: 065
     Dates: start: 20170714, end: 20180501
  25. THEOPHYLLINE [Concomitant]
     Active Substance: THEOPHYLLINE
     Indication: Asthma
     Dosage: 200 MG, UNKNOWN
     Route: 065
     Dates: start: 20170818
  26. CARBOCYSTEINE [Concomitant]
     Active Substance: CARBOCYSTEINE
     Indication: Asthma
     Dosage: 1000 MG, UNKNOWN
     Route: 065
     Dates: start: 20170818
  27. ELBASVIR [Concomitant]
     Active Substance: ELBASVIR
     Indication: Hepatitis C
     Dosage: 50 MG, UNKNOWN
     Route: 065
     Dates: start: 20170902, end: 20170919
  28. GRAZOPREVIR [Concomitant]
     Active Substance: GRAZOPREVIR
     Indication: Hepatitis C
     Dosage: 100 MG, UNKNOWN
     Route: 065
     Dates: start: 20170902, end: 20170919
  29. LOPERAMIDE HYDROCHLORIDE [Concomitant]
     Active Substance: LOPERAMIDE HYDROCHLORIDE
     Indication: Diarrhoea
     Dosage: 1 MG, UNKNOWN
     Route: 065
     Dates: start: 20170912, end: 20170919
  30. LACTULOSE [Concomitant]
     Active Substance: LACTULOSE
     Indication: Hyperammonaemia
     Dosage: 30 ML, UNKNOWN
     Route: 065
     Dates: start: 20170918, end: 20170921
  31. HERBALS [Concomitant]
     Active Substance: HERBALS
     Indication: Diarrhoea
     Dosage: 2 G, UNKNOWN
     Route: 065
     Dates: start: 20170929, end: 20171006
  32. RIFAXIMIN [Concomitant]
     Active Substance: RIFAXIMIN
     Indication: Product used for unknown indication
     Dosage: 1200 MG, UNKNOWN
     Route: 065
     Dates: start: 20170923

REACTIONS (5)
  - Hyperammonaemia [Fatal]
  - Hepatic encephalopathy [Fatal]
  - Pulmonary arterial hypertension [Fatal]
  - Hypotension [Fatal]
  - Diarrhoea [Recovering/Resolving]

NARRATIVE: CASE EVENT DATE: 20170912
